FAERS Safety Report 5426032-2 (Version None)
Quarter: 2007Q3

REPORT INFORMATION
  Report Type: 
  Country: None (occurrence: None)
  Receive Date: 20070824
  Receipt Date: 20070824
  Transmission Date: 20080115
  Serious: Yes (Hospitalization)
  Sender: FDA-Public Use
  Company Number: None

PATIENT
  Sex: Female
  Weight: 76.6579 kg

DRUGS (2)
  1. DILANTIN [Suspect]
     Indication: CONVULSION
     Dosage: 400MG AT BEDTIME ORAL
     Route: 048
  2. LYRICA [Suspect]
     Indication: NEURALGIA
     Dosage: 75 MG THREE TIMES DAILY ORAL
     Route: 048
     Dates: start: 20070618, end: 20070711

REACTIONS (7)
  - ASTHENIA [None]
  - BREAST PAIN [None]
  - COORDINATION ABNORMAL [None]
  - DIZZINESS [None]
  - DRUG INTERACTION [None]
  - SOMNOLENCE [None]
  - THERAPEUTIC AGENT TOXICITY [None]
